FAERS Safety Report 6946363-4 (Version None)
Quarter: 2010Q3

REPORT INFORMATION
  Report Type: 
  Country: None (occurrence: None)
  Receive Date: 20100824
  Receipt Date: 20100810
  Transmission Date: 20110219
  Serious: Yes (Hospitalization, Other)
  Sender: FDA-Public Use
  Company Number: CLOF-10459

PATIENT
  Age: 62 Year
  Sex: Male

DRUGS (10)
  1. CLOFARABINE OR PLACEBO (CODE NOT BROKEN) [Suspect]
     Indication: MYELOID LEUKAEMIA
     Dates: start: 20070212, end: 20070215
  2. CYTARABINE [Suspect]
     Indication: ACUTE MYELOID LEUKAEMIA
     Dosage: 2.33 G, INTRAVENOUS
     Route: 042
     Dates: start: 20070212, end: 20070215
  3. MORPHINE [Concomitant]
  4. TRAMADOL HCL [Concomitant]
  5. ROBAXIN [Concomitant]
  6. SKELAXIN [Concomitant]
  7. HYDROCORTISONE SODIUM SUCCINATE [Concomitant]
  8. METRONIDAZOLE (METRONIDAZOLE SODIUM) [Concomitant]
  9. VANCOMYCIN [Concomitant]
  10. FUROSEMIDE (FUROSEMIDE SODIUM) [Concomitant]

REACTIONS (18)
  - BACK INJURY [None]
  - BACK PAIN [None]
  - CAPILLARY LEAK SYNDROME [None]
  - CONFUSIONAL STATE [None]
  - FALL [None]
  - GAIT DISTURBANCE [None]
  - HAEMOGLOBIN DECREASED [None]
  - HAEMOPTYSIS [None]
  - HEADACHE [None]
  - LIPASE INCREASED [None]
  - MENTAL STATUS CHANGES [None]
  - PANCREATITIS [None]
  - PNEUMONIA [None]
  - PULMONARY OEDEMA [None]
  - SPEECH DISORDER [None]
  - TREMOR [None]
  - WHEEZING [None]
  - WHITE BLOOD CELL COUNT DECREASED [None]
